FAERS Safety Report 25929425 (Version 1)
Quarter: 2025Q4

REPORT INFORMATION
  Report Type: Report from Study
  Country: EG (occurrence: EG)
  Receive Date: 20251016
  Receipt Date: 20251016
  Transmission Date: 20260118
  Serious: Yes (Hospitalization, Disabling)
  Sender: EMD SERONO INC
  Company Number: EG-Merck Healthcare KGaA-2025051396

PATIENT
  Age: 14 Year
  Sex: Male

DRUGS (1)
  1. SAIZEN [Suspect]
     Active Substance: SOMATROPIN
     Indication: Growth hormone deficiency
     Dosage: 1.3 MILLIGRAMS DAILY
     Dates: start: 20230905, end: 20250701

REACTIONS (1)
  - Spinal deformity [Recovered/Resolved with Sequelae]

NARRATIVE: CASE EVENT DATE: 20250701
